FAERS Safety Report 18826353 (Version 1)
Quarter: 2021Q1

REPORT INFORMATION
  Report Type: Spontaneous
  Country: US (occurrence: US)
  Receive Date: 20210201
  Receipt Date: 20210201
  Transmission Date: 20210419
  Serious: No
  Sender: FDA-Public Use
  Company Number: US-ABBVIE-20K-163-3400608-00

PATIENT
  Age: 39 Year
  Sex: Male
  Weight: 79.45 kg

DRUGS (2)
  1. HUMIRA [Suspect]
     Active Substance: ADALIMUMAB
     Indication: COLITIS ULCERATIVE
     Route: 058
     Dates: end: 2013
  2. HUMIRA [Suspect]
     Active Substance: ADALIMUMAB
     Route: 058

REACTIONS (9)
  - Blood testosterone decreased [Recovering/Resolving]
  - Device issue [Recovered/Resolved]
  - Device issue [Recovered/Resolved]
  - Influenza like illness [Recovering/Resolving]
  - Immune system disorder [Recovering/Resolving]
  - Incorrect dose administered [Recovered/Resolved]
  - Colitis ulcerative [Recovering/Resolving]
  - Arthralgia [Recovering/Resolving]
  - Eczema [Recovering/Resolving]

NARRATIVE: CASE EVENT DATE: 2018
